FAERS Safety Report 13351953 (Version 1)
Quarter: 2017Q1

REPORT INFORMATION
  Report Type: Spontaneous
  Country: US (occurrence: US)
  Receive Date: 20170320
  Receipt Date: 20170320
  Transmission Date: 20170429
  Serious: Yes (Other)
  Sender: FDA-Public Use
  Company Number: US-SA-2016SA200186

PATIENT
  Sex: Male

DRUGS (9)
  1. AZMACORT [Suspect]
     Active Substance: TRIAMCINOLONE ACETONIDE
     Indication: ASTHMA
     Dosage: DOSE 1 OR 2 PUFFS.
     Route: 065
  2. PREDNISONE. [Suspect]
     Active Substance: PREDNISONE
     Indication: ASTHMA
     Dosage: DOSE: TAPPERING DOSE
     Route: 065
  3. PREDNISONE. [Suspect]
     Active Substance: PREDNISONE
     Indication: ASTHMA
     Route: 065
     Dates: start: 1989
  4. PREDNISONE. [Suspect]
     Active Substance: PREDNISONE
     Indication: ASTHMA
     Route: 065
     Dates: start: 199711
  5. ALBUTEROL. [Concomitant]
     Active Substance: ALBUTEROL
     Route: 065
     Dates: start: 199609, end: 19971204
  6. AZMACORT [Suspect]
     Active Substance: TRIAMCINOLONE ACETONIDE
     Indication: ASTHMA
     Route: 065
     Dates: start: 199611
  7. PREDNISONE. [Suspect]
     Active Substance: PREDNISONE
     Indication: ASTHMA
     Route: 065
     Dates: start: 1994
  8. NASACORT AQ [Suspect]
     Active Substance: TRIAMCINOLONE ACETONIDE
     Indication: ASTHMA
     Route: 045
     Dates: start: 199611
  9. NASACORT AQ [Suspect]
     Active Substance: TRIAMCINOLONE ACETONIDE
     Indication: ASTHMA
     Dosage: DOSE  2 PUFF IN EACH NOSTRILS.
     Route: 045

REACTIONS (10)
  - Cough [Unknown]
  - Drug intolerance [Unknown]
  - Upper respiratory tract congestion [Unknown]
  - Agitation [Unknown]
  - Choking [Unknown]
  - Condition aggravated [Unknown]
  - Hypersensitivity [Unknown]
  - Dyspnoea [Unknown]
  - Nasal congestion [Unknown]
  - Drug ineffective [Unknown]
